FAERS Safety Report 5713166-8 (Version None)
Quarter: 2008Q2

REPORT INFORMATION
  Report Type: 
  Country: None (occurrence: None)
  Receive Date: 20080422
  Receipt Date: 20080418
  Transmission Date: 20081010
  Serious: Yes (Hospitalization)
  Sender: FDA-Public Use
  Company Number: US-ASTRAZENECA-2008UW07995

PATIENT
  Age: 78 Year
  Sex: Female

DRUGS (14)
  1. PULMICORT FLEXHALER [Suspect]
     Route: 055
  2. LIPITOR [Concomitant]
  3. SYNTHROID [Concomitant]
  4. CITALOPRAM HYDROBROMIDE [Concomitant]
  5. GLYBURIDE [Concomitant]
  6. COZAAR [Concomitant]
  7. NITROGLYCERIN [Concomitant]
  8. ASPIRIN [Concomitant]
  9. METOPROLOL TARTRATE [Concomitant]
  10. ALEVE [Concomitant]
  11. CALCIUM [Concomitant]
  12. PRILOSEC [Concomitant]
  13. OMEGA 3 [Concomitant]
  14. CHLORTHALIDONE [Concomitant]

REACTIONS (1)
  - DYSPNOEA [None]
